FAERS Safety Report 4530253-0 (Version None)
Quarter: 2004Q4

REPORT INFORMATION
  Report Type: 
  Country: None (occurrence: None)
  Receive Date: 20041215
  Receipt Date: 20041202
  Transmission Date: 20050328
  Serious: Yes (Other)
  Sender: FDA-Public Use
  Company Number: 2004103842

PATIENT
  Age: 43 Year
  Sex: Female

DRUGS (8)
  1. DIFLUCAN [Suspect]
     Indication: ENCEPHALOPATHY
     Dosage: 400 MG (1 D)
  2. DIFLUCAN [Suspect]
     Indication: HISTOPLASMOSIS
     Dosage: 400 MG (1 D)
  3. AMPHOTERICIN B [Suspect]
     Indication: ENCEPHALOPATHY
  4. AMPHOTERICIN B [Suspect]
     Indication: HISTOPLASMOSIS
  5. PYRAZINAMIDE [Concomitant]
  6. LEVOTHYROXINE SODIUM [Concomitant]
  7. WARFARIN SODIUM [Concomitant]
  8. ALL OTHER THERAPEUTIC PRODUCTS (ALL OTHER THERAPEUTIC PRODUCTS) [Concomitant]

REACTIONS (6)
  - BLOOD CREATINE PHOSPHOKINASE INCREASED [None]
  - BLOOD POTASSIUM DECREASED [None]
  - CARDIAC FAILURE [None]
  - MUSCULAR WEAKNESS [None]
  - PLEURAL EFFUSION [None]
  - RENAL IMPAIRMENT [None]
